FAERS Safety Report 14762421 (Version 2)
Quarter: 2018Q2

REPORT INFORMATION
  Report Type: Report from Study
  Country: None (occurrence: MX)
  Receive Date: 20180416
  Receipt Date: 20180606
  Transmission Date: 20180711
  Serious: Yes (Hospitalization, Other)
  Sender: FDA-Public Use
  Company Number: MX-ABBVIE-18K-107-2217056-00

PATIENT
  Sex: Female
  Weight: 68 kg

DRUGS (1)
  1. HUMIRA [Suspect]
     Active Substance: ADALIMUMAB
     Indication: RHEUMATOID ARTHRITIS
     Route: 058
     Dates: start: 2015, end: 20171030

REACTIONS (3)
  - Melanocytic naevus [Recovered/Resolved]
  - Breast cancer female [Recovering/Resolving]
  - Lipoma of breast [Recovering/Resolving]

NARRATIVE: CASE EVENT DATE: 2015
